FAERS Safety Report 19381989 (Version 1)
Quarter: 2021Q2

REPORT INFORMATION
  Report Type: Other
  Country: US (occurrence: US)
  Receive Date: 20210607
  Receipt Date: 20210607
  Transmission Date: 20210717
  Serious: Yes (Other)
  Sender: FDA-Public Use
  Company Number: US-ROCHE-2839757

PATIENT
  Sex: Female
  Weight: 82.17 kg

DRUGS (4)
  1. OCREVUS [Suspect]
     Active Substance: OCRELIZUMAB
     Indication: RELAPSING-REMITTING MULTIPLE SCLEROSIS
     Dosage: LAST DATE OF TREATMENT: 20/SEP/2020
     Route: 042
  2. VALACYCLOVIR HCL [Concomitant]
     Active Substance: VALACYCLOVIR HYDROCHLORIDE
     Route: 048
     Dates: start: 20191017
  3. FLUOXETINE HCL [Concomitant]
     Active Substance: FLUOXETINE HYDROCHLORIDE
     Route: 048
  4. BUSPIRONE HCL [Concomitant]
     Active Substance: BUSPIRONE HYDROCHLORIDE
     Dosage: 1 IN THE MORNING AND 2 IN THE EVENING
     Route: 048

REACTIONS (12)
  - Rhinitis allergic [Unknown]
  - Menstruation delayed [Unknown]
  - Influenza [Unknown]
  - Abortion spontaneous [Unknown]
  - Acne [Unknown]
  - Somnolence [Unknown]
  - Obesity [Unknown]
  - Sleep apnoea syndrome [Unknown]
  - Tendonitis [Unknown]
  - Maternal exposure before pregnancy [Unknown]
  - Muscle strain [Unknown]
  - Exposure to communicable disease [Unknown]
